FAERS Safety Report 16464729 (Version 1)
Quarter: 2019Q2

REPORT INFORMATION
  Report Type: Spontaneous
  Country: US (occurrence: US)
  Receive Date: 20190621
  Receipt Date: 20190621
  Transmission Date: 20190711
  Serious: No
  Sender: FDA-Public Use
  Company Number: US-TEVA-2019-US-1059533

PATIENT
  Sex: Male

DRUGS (1)
  1. CARVEDILOL TABLETS 25 MG [Suspect]
     Active Substance: CARVEDILOL

REACTIONS (2)
  - Drug hypersensitivity [Unknown]
  - Malaise [Unknown]
